FAERS Safety Report 19438329 (Version 1)
Quarter: 2021Q2

REPORT INFORMATION
  Report Type: Spontaneous
  Country: CA (occurrence: CA)
  Receive Date: 20210618
  Receipt Date: 20210618
  Transmission Date: 20210717
  Serious: Yes (Life-Threatening)
  Sender: FDA-Public Use
  Company Number: CA-PFIZER INC-2021676848

PATIENT
  Sex: Female

DRUGS (5)
  1. QUETIAPINE XR [Concomitant]
     Active Substance: QUETIAPINE
  2. VENLAFAXINE XR [Concomitant]
     Active Substance: VENLAFAXINE HYDROCHLORIDE
  3. TEMAZEPAM. [Concomitant]
     Active Substance: TEMAZEPAM
  4. HYDROMORPHONE HYDROCHLORIDE. [Suspect]
     Active Substance: HYDROMORPHONE HYDROCHLORIDE
     Dosage: UNK
  5. LEVOTHYROXINE. [Concomitant]
     Active Substance: LEVOTHYROXINE

REACTIONS (4)
  - Respiratory depression [Recovered/Resolved]
  - Oxygen saturation decreased [Recovered/Resolved]
  - Overdose [Recovered/Resolved]
  - Coma scale abnormal [Recovered/Resolved]
